FAERS Safety Report 19886841 (Version 1)
Quarter: 2021Q3

REPORT INFORMATION
  Report Type: Report from Study
  Country: None (occurrence: US)
  Receive Date: 20210928
  Receipt Date: 20210928
  Transmission Date: 20211014
  Serious: Yes (Other)
  Sender: FDA-Public Use
  Company Number: US-ABBVIE-21K-163-4094052-00

PATIENT
  Sex: Female

DRUGS (2)
  1. VENCLEXTA [Suspect]
     Active Substance: VENETOCLAX
     Indication: PLASMA CELL MYELOMA
  2. VENCLEXTA [Suspect]
     Active Substance: VENETOCLAX
     Indication: IDIOPATHIC INTRACRANIAL HYPERTENSION
     Dosage: TAKE 4 TABLET(S) BY MOUTH DAILY ON MONDAY TO FRIDAY
     Route: 048

REACTIONS (2)
  - Off label use [Unknown]
  - Haematuria [Unknown]
